FAERS Safety Report 8862815 (Version 3)
Quarter: 2013Q3

REPORT INFORMATION
  Report Type: Spontaneous
  Country: US (occurrence: US)
  Receive Date: 20121026
  Receipt Date: 20130729
  Transmission Date: 20140515
  Serious: Yes (Death, Life-Threatening)
  Sender: FDA-Public Use
  Company Number: US-ASTRAZENECA-2011SE60293

PATIENT
  Age: 73 Year
  Sex: Female
  Weight: 54.4 kg

DRUGS (15)
  1. CRESTOR [Suspect]
     Indication: BLOOD CHOLESTEROL INCREASED
     Route: 048
     Dates: start: 2011
  2. CRESTOR [Suspect]
     Indication: BLOOD CHOLESTEROL INCREASED
     Route: 048
  3. CRESTOR [Suspect]
     Indication: BLOOD CHOLESTEROL INCREASED
     Route: 048
     Dates: end: 201206
  4. CITROMAX [Concomitant]
  5. LANOXIN [Concomitant]
  6. PROTONIX [Concomitant]
  7. METHYLDOPA [Concomitant]
  8. CARVEDILOL [Concomitant]
  9. METFORMIN [Concomitant]
  10. FOLIC ACID [Concomitant]
  11. VITAMIN D [Concomitant]
  12. MG CHLORIDE [Concomitant]
  13. DEXAMETHASONE [Concomitant]
  14. DIAZEPAM [Concomitant]
  15. PEPCID [Concomitant]
     Dosage: PRN

REACTIONS (7)
  - Cardio-respiratory arrest [Fatal]
  - Coma [Not Recovered/Not Resolved]
  - Costochondritis [Unknown]
  - Abasia [Unknown]
  - Myalgia [Not Recovered/Not Resolved]
  - Pain in extremity [Unknown]
  - Off label use [Unknown]
